FAERS Safety Report 22653299 (Version 5)
Quarter: 2024Q1

REPORT INFORMATION
  Report Type: Spontaneous
  Country: CA (occurrence: CA)
  Receive Date: 20230629
  Receipt Date: 20240307
  Transmission Date: 20240410
  Serious: Yes (Other)
  Sender: FDA-Public Use
  Company Number: CA-CELLTRION INC.-2021CA018674

PATIENT

DRUGS (16)
  1. INFLECTRA [Suspect]
     Active Substance: INFLIXIMAB-DYYB
     Indication: Crohn^s disease
     Dosage: 800 MG (SUPPOSED TO RECEIVE 10 MG/KG ROUNDED TO THE NEAREST VIAL)
     Route: 042
     Dates: start: 20220117
  2. INFLECTRA [Suspect]
     Active Substance: INFLIXIMAB-DYYB
     Dosage: 800 MG (SUPPOSED TO RECEIVE 10 MG/KG ROUNDED TO THE NEAREST VIAL)
     Route: 042
     Dates: start: 20220117, end: 20240219
  3. INFLECTRA [Suspect]
     Active Substance: INFLIXIMAB-DYYB
     Dosage: 10 MG/KG, EVERY 5 WEEKS (ROUNDED TO NEAREST VIAL)
     Route: 042
     Dates: start: 20220117, end: 20220117
  4. INFLECTRA [Suspect]
     Active Substance: INFLIXIMAB-DYYB
     Dosage: 10 MG/KG, EVERY 5 WEEKS (ROUNDED TO NEAREST VIAL)
     Route: 042
     Dates: start: 20220221, end: 20220221
  5. INFLECTRA [Suspect]
     Active Substance: INFLIXIMAB-DYYB
     Dosage: 10 MG/KG, EVERY 5 WEEKS (ROUNDED TO NEAREST VIAL)
     Route: 042
     Dates: start: 20220328, end: 20220328
  6. INFLECTRA [Suspect]
     Active Substance: INFLIXIMAB-DYYB
     Dosage: 10 MG/KG, EVERY 5 WEEKS (ROUNDED TO NEAREST VIAL)
     Route: 042
     Dates: start: 20220503, end: 20220503
  7. INFLECTRA [Suspect]
     Active Substance: INFLIXIMAB-DYYB
     Dosage: 10 MG/KG, EVERY 5 WEEKS (ROUNDED TO NEAREST VIAL)
     Route: 042
     Dates: start: 20220607
  8. INFLECTRA [Suspect]
     Active Substance: INFLIXIMAB-DYYB
     Dosage: 10 MG/KG, EVERY 5 WEEKS (ROUNDED TO NEAREST VIAL)
     Route: 042
     Dates: start: 20220712
  9. INFLECTRA [Suspect]
     Active Substance: INFLIXIMAB-DYYB
     Dosage: 10 MG/KG, EVERY 5 WEEKS (ROUNDED TO NEAREST VIAL)
     Route: 042
     Dates: start: 20220816, end: 20220816
  10. INFLECTRA [Suspect]
     Active Substance: INFLIXIMAB-DYYB
     Dosage: 10 MG/KG, EVERY 5 WEEKS (ROUNDED TO NEAREST VIAL)
     Route: 042
     Dates: start: 20221004, end: 20221004
  11. INFLECTRA [Suspect]
     Active Substance: INFLIXIMAB-DYYB
     Dosage: 10 MG/KG, EVERY 5 WEEKS (ROUNDED TO NEAREST VIAL)
     Route: 042
     Dates: start: 20221107
  12. INFLECTRA [Suspect]
     Active Substance: INFLIXIMAB-DYYB
     Dosage: 10 MG/KG, EVERY 5 WEEKS (ROUNDED TO NEAREST VIAL)
     Route: 042
     Dates: start: 20221214, end: 20221214
  13. INFLECTRA [Suspect]
     Active Substance: INFLIXIMAB-DYYB
     Dosage: 10 MG/KG, EVERY 5 WEEKS (ROUNDED TO NEAREST VIAL)
     Route: 042
     Dates: start: 20230501
  14. INFLECTRA [Suspect]
     Active Substance: INFLIXIMAB-DYYB
     Dosage: 900 MG, 10 WEEKS AND ONE DAY AFTER LAST TREATMENT
     Route: 042
     Dates: start: 20230711
  15. INFLECTRA [Suspect]
     Active Substance: INFLIXIMAB-DYYB
     Dosage: 900 MG, 10 WEEKS AND ONE DAY AFTER LAST TREATMENT
     Route: 042
     Dates: start: 20231026
  16. INFLECTRA [Suspect]
     Active Substance: INFLIXIMAB-DYYB
     Dosage: 10 MG/KG EVERY 5 WEEKS (AFTER 6 WEEKS AND 4 DAYS )
     Route: 042
     Dates: start: 20231211

REACTIONS (12)
  - Prostatitis [Unknown]
  - Influenza [Not Recovered/Not Resolved]
  - Condition aggravated [Recovered/Resolved]
  - Limb injury [Recovering/Resolving]
  - COVID-19 [Not Recovered/Not Resolved]
  - Illness [Not Recovered/Not Resolved]
  - Influenza like illness [Recovering/Resolving]
  - Bronchitis [Recovered/Resolved]
  - Off label use [Unknown]
  - Off label use [Unknown]
  - Intentional product use issue [Unknown]
  - Inappropriate schedule of product administration [Unknown]

NARRATIVE: CASE EVENT DATE: 20220117
